FAERS Safety Report 6902945-7 (Version None)
Quarter: 2010Q3

REPORT INFORMATION
  Report Type: 
  Country: None (occurrence: None)
  Receive Date: 20100803
  Receipt Date: 20080716
  Transmission Date: 20110219
  Serious: Yes (Life-Threatening, Other)
  Sender: FDA-Public Use
  Company Number: US-PFIZER INC-2008052561

PATIENT
  Sex: Female
  Weight: 54.4 kg

DRUGS (12)
  1. LYRICA [Suspect]
     Indication: FIBROMYALGIA
     Route: 048
     Dates: start: 20080616, end: 20080101
  2. ISOSORBIDE MONONITRATE [Suspect]
  3. LISINOPRIL [Suspect]
  4. MAGNESIUM SULFATE [Suspect]
     Route: 037
  5. CARBIDOPA [Concomitant]
  6. COMTAN [Concomitant]
  7. LEVOTHYROXINE [Concomitant]
  8. MORPHINE [Concomitant]
  9. PRILOSEC [Concomitant]
  10. ANTIDEPRESSANTS [Concomitant]
  11. EFFEXOR XR [Concomitant]
  12. ACTONEL [Concomitant]

REACTIONS (4)
  - BALANCE DISORDER [None]
  - DIZZINESS [None]
  - GAIT DISTURBANCE [None]
  - HYPOTENSION [None]
